FAERS Safety Report 18538904 (Version 2)
Quarter: 2020Q4

REPORT INFORMATION
  Report Type: Spontaneous
  Country: IT (occurrence: IT)
  Receive Date: 20201124
  Receipt Date: 20201201
  Transmission Date: 20210114
  Serious: Yes (Other)
  Sender: FDA-Public Use
  Company Number: IT-PFIZER INC-2020456683

PATIENT
  Age: 21 Year
  Sex: Male

DRUGS (2)
  1. SERTRALINE HCL [Suspect]
     Active Substance: SERTRALINE HYDROCHLORIDE
     Indication: MAJOR DEPRESSION
     Dosage: 100 MG, 1X/DAY
  2. SERTRALINE HCL [Suspect]
     Active Substance: SERTRALINE HYDROCHLORIDE
     Dosage: UNK (TAPERING)

REACTIONS (12)
  - Irritability [Unknown]
  - Sexual dysfunction [Recovering/Resolving]
  - Memory impairment [Unknown]
  - Toxicity to various agents [Unknown]
  - Emotional disorder [Unknown]
  - Attention deficit hyperactivity disorder [Unknown]
  - Obsessive-compulsive disorder [Unknown]
  - Generalised anxiety disorder [Unknown]
  - Dissociation [Unknown]
  - Drug withdrawal syndrome [Unknown]
  - Persistent depressive disorder [Unknown]
  - Abnormal behaviour [Unknown]
